FAERS Safety Report 19637015 (Version 2)
Quarter: 2022Q2

REPORT INFORMATION
  Report Type: Report from Study
  Country: JP (occurrence: JP)
  Receive Date: 20210730
  Receipt Date: 20211206
  Transmission Date: 20220721
  Serious: Yes (Hospitalization)
  Sender: FDA-Public Use
  Company Number: JP-RECORDATI RARE DISEASE INC.-2021002806

PATIENT
  Age: 0 Year
  Sex: Female
  Weight: 2.566 kg

DRUGS (24)
  1. NEOPROFEN [Suspect]
     Active Substance: IBUPROFEN LYSINE
     Indication: Patent ductus arteriosus
     Dosage: 24.32 MILLIGRAM, QD
     Route: 042
     Dates: start: 20190723, end: 20190723
  2. NEOPROFEN [Suspect]
     Active Substance: IBUPROFEN LYSINE
     Dosage: 12.16 MILLIGRAM, QD
     Route: 042
     Dates: start: 20190724, end: 20190724
  3. NEOPROFEN [Suspect]
     Active Substance: IBUPROFEN LYSINE
     Dosage: 12.16 MILLIGRAM, QD
     Route: 042
     Dates: start: 20190725, end: 20190725
  4. ISOTONIC SODIUM CHLORIDE SOLUTION [Concomitant]
     Active Substance: SODIUM CHLORIDE
     Indication: Product used for unknown indication
     Dosage: UNK UNK, UNK
     Route: 042
     Dates: start: 20190716, end: 20190723
  5. HEPARIN SODIUM [Concomitant]
     Active Substance: HEPARIN SODIUM
     Indication: Coagulopathy
     Dosage: UNK UNK, UNK
     Route: 042
     Dates: start: 20190716, end: 20190812
  6. HEPARIN SODIUM [Concomitant]
     Active Substance: HEPARIN SODIUM
     Indication: Prophylaxis
  7. ANHYDROUS DEXTROSE [Concomitant]
     Active Substance: ANHYDROUS DEXTROSE
     Indication: Nutritional supplementation
     Dosage: UNK UNK, UNK
     Route: 042
     Dates: start: 20190716, end: 20190724
  8. ANHYDROUS DEXTROSE [Concomitant]
     Active Substance: ANHYDROUS DEXTROSE
     Indication: Blood glucose decreased
  9. KCL [Concomitant]
     Active Substance: POTASSIUM CHLORIDE
     Indication: Mineral supplementation
     Dosage: UNK UNK, UNK
     Route: 042
     Dates: start: 20190718, end: 20190724
  10. SODIUM PHOSPHATE [SODIUM PHOSPHATE DIBASIC] [Concomitant]
     Indication: Blood phosphorus decreased
     Dosage: UNK UNK, UNK
     Route: 042
     Dates: start: 20190718, end: 20190724
  11. SODIUM PHOSPHATE [SODIUM PHOSPHATE DIBASIC] [Concomitant]
     Indication: Mineral supplementation
  12. SOLDEM 3AG [Concomitant]
     Indication: Product used for unknown indication
     Dosage: UNK UNK, UNK
     Route: 042
     Dates: start: 20190718, end: 20190812
  13. PLEAMIN P [Concomitant]
     Indication: Nutritional supplementation
     Dosage: UNK UNK, UNK
     Route: 042
     Dates: start: 20190717, end: 20190723
  14. CALCIUM GLUCONATE [Concomitant]
     Active Substance: CALCIUM GLUCONATE
     Indication: Mineral supplementation
     Dosage: UNK UNK, UNK
     Route: 042
     Dates: start: 20190716, end: 20190724
  15. INOVAN [DOPAMINE HYDROCHLORIDE] [Concomitant]
     Indication: Hydrops foetalis
     Dosage: UNK UNK, UNK
     Route: 042
     Dates: start: 20190716, end: 20190723
  16. DOBUTREX [Concomitant]
     Active Substance: DOBUTAMINE HYDROCHLORIDE
     Indication: Hydrops foetalis
     Dosage: UNK UNK, UNK
     Route: 042
     Dates: start: 20190716, end: 20190723
  17. FENTANYL CITRATE [Concomitant]
     Active Substance: FENTANYL CITRATE
     Indication: Hydrops foetalis
     Dosage: UNK UNK, UNK
     Route: 042
     Dates: start: 20190716, end: 20190725
  18. OTSUKA MV [Concomitant]
     Indication: Vitamin supplementation
     Dosage: UNK UNK, UNK
     Route: 042
     Dates: start: 20190717, end: 20190723
  19. LASIX [Concomitant]
     Active Substance: FUROSEMIDE
     Indication: Hydrops foetalis
     Dosage: UNK UNK, UNK
     Route: 042
     Dates: start: 20190717, end: 20190801
  20. MINERIC 5 [Concomitant]
     Indication: Trace element deficiency
     Dosage: UNK UNK, UNK
     Route: 042
     Dates: start: 20190717, end: 20190723
  21. MENATETRENONE [Concomitant]
     Active Substance: MENATETRENONE
     Indication: Haemorrhage prophylaxis
     Dosage: UNK UNK, UNK
     Route: 048
     Dates: start: 20190723, end: 20190904
  22. MENATETRENONE [Concomitant]
     Active Substance: MENATETRENONE
     Indication: Vitamin K deficiency
  23. PANVITAN [ASCORBIC ACID;DEXPANTHENOL;ERGOCALCIFEROL;NICOTINAMIDE;PYRID [Concomitant]
     Indication: Vitamin supplementation
     Dosage: UNK UNK, UNK
     Route: 048
     Dates: start: 20190724, end: 20190904
  24. TOCOPHERYL NICOTINATE, D-.ALPHA. [Concomitant]
     Active Substance: TOCOPHERYL NICOTINATE, D-.ALPHA.
     Indication: Vitamin supplementation
     Dosage: UNK UNK, UNK
     Route: 048
     Dates: start: 20190724, end: 20190904

REACTIONS (1)
  - Rhabdomyolysis [Recovering/Resolving]

NARRATIVE: CASE EVENT DATE: 20190731
